FAERS Safety Report 9238144 (Version 1)
Quarter: 2013Q1

REPORT INFORMATION
  Report Type: Spontaneous
  Country: US (occurrence: None)
  Receive Date: 20121107
  Receipt Date: 20121107
  Transmission Date: 20140127
  Serious: No
  Sender: FDA-Public Use
  Company Number: 2012HGS-003785

PATIENT
  Age: 29 Year
  Sex: Female
  Weight: 128.82 kg

DRUGS (7)
  1. BENLYSTA [Suspect]
     Indication: SYSTEMIC LUPUS ERYTHEMATOSUS
     Dosage: 1 IN 28 D, INTRAVENOUS DRIP
     Route: 041
     Dates: start: 20120702
  2. VERAPAMIL(VERAPAMIL) (VERAPAMIL) [Concomitant]
  3. AMBIEN(ZOLPIDEM TARTRATE) (ZOLPIDEM TARTRATE) [Concomitant]
  4. TORADOL(KETOROLAC TROMETHAMINE) (KETOROLAC TROMETHAMINE) [Concomitant]
  5. PHENERGAN(PROMETHAZINE) (PROMETHAZINE) [Concomitant]
  6. BENADRYL(DIPHENHYDRAMINE HYDROCHLORIDE) (DIPHENHYDRAMINE HYDROCHLORIDE) [Concomitant]
  7. AMITRIPTYLINE(AMITRIPTYLINE) (AMITRIPTYLINE) [Concomitant]

REACTIONS (3)
  - Cold sweat [None]
  - Feeling hot [None]
  - Migraine [None]
